FAERS Safety Report 25044352 (Version 3)
Quarter: 2025Q3

REPORT INFORMATION
  Report Type: Spontaneous
  Country: JP (occurrence: JP)
  Receive Date: 20250306
  Receipt Date: 20250809
  Transmission Date: 20251020
  Serious: Yes (Other)
  Sender: ALEXION PHARMACEUTICALS
  Company Number: JP-ASTRAZENECA-250020450_032620_P_1

PATIENT
  Age: 87 Year
  Sex: Male
  Weight: 37 kg

DRUGS (6)
  1. FASENRA [Suspect]
     Active Substance: BENRALIZUMAB
     Indication: Asthma
  2. FASENRA [Suspect]
     Active Substance: BENRALIZUMAB
  3. SALMETEROL [Concomitant]
     Active Substance: SALMETEROL
  4. TIOTROPIUM [Concomitant]
     Active Substance: TIOTROPIUM
  5. PRANLUKAST HEMIHYDRATE [Concomitant]
     Active Substance: PRANLUKAST HEMIHYDRATE
  6. THEOPHYLLINE [Concomitant]
     Active Substance: THEOPHYLLINE

REACTIONS (3)
  - Bronchiectasis [Unknown]
  - Bronchial secretion retention [Unknown]
  - Drug ineffective [Unknown]
